FAERS Safety Report 20944690 (Version 1)
Quarter: 2022Q2

REPORT INFORMATION
  Report Type: Spontaneous
  Country: BR (occurrence: BR)
  Receive Date: 20220610
  Receipt Date: 20220610
  Transmission Date: 20220721
  Serious: Yes (Other)
  Sender: FDA-Public Use
  Company Number: BR-ASTELLAS-2022US020603

PATIENT
  Age: 37 Year
  Sex: Male

DRUGS (1)
  1. MYRBETRIQ [Suspect]
     Active Substance: MIRABEGRON
     Indication: Neurogenic bladder
     Dosage: 50 MG, ONCE DAILY (ONCE A DAY AT MORNING)
     Route: 065

REACTIONS (3)
  - Syringomyelia [Unknown]
  - Condition aggravated [Unknown]
  - Off label use [Unknown]
